FAERS Safety Report 11874015 (Version 1)
Quarter: 2015Q4

REPORT INFORMATION
  Report Type: Spontaneous
  Country: US (occurrence: US)
  Receive Date: 20151229
  Receipt Date: 20151229
  Transmission Date: 20160305
  Serious: Yes (Other)
  Sender: FDA-Public Use
  Company Number: US-CIPLA LTD.-2015US09667

PATIENT

DRUGS (2)
  1. RISPERIDONE. [Suspect]
     Active Substance: RISPERIDONE
     Indication: SCHIZOPHRENIA
     Dosage: 1 MG, QD
     Route: 064
  2. SERTRALINE [Suspect]
     Active Substance: SERTRALINE HYDROCHLORIDE
     Dosage: 50 MG, QD
     Route: 064

REACTIONS (7)
  - Hypersensitivity [Recovered/Resolved]
  - Drug withdrawal syndrome [Recovered/Resolved]
  - Hyperreflexia [Recovered/Resolved]
  - Irritability [Recovered/Resolved]
  - Choking [Recovered/Resolved]
  - Feeling jittery [Recovered/Resolved]
  - Foetal exposure during pregnancy [Unknown]
